FAERS Safety Report 26179234 (Version 1)
Quarter: 2025Q4

REPORT INFORMATION
  Report Type: Spontaneous
  Country: US (occurrence: US)
  Receive Date: 20251219
  Receipt Date: 20251219
  Transmission Date: 20260117
  Serious: No
  Sender: MERCK KGAA
  Company Number: US-Merck Healthcare KGaA-2025036213

PATIENT
  Sex: Female

DRUGS (2)
  1. MAVENCLAD [Suspect]
     Active Substance: CLADRIBINE
     Indication: Multiple sclerosis
     Dosage: YEAR ONE MONTH ONE THERAPY
     Dates: start: 20241222, end: 20241225
  2. MAVENCLAD [Suspect]
     Active Substance: CLADRIBINE
     Dosage: YEAR ONE MONTH TWO THERAPY
     Dates: start: 20250130, end: 20250202

REACTIONS (12)
  - Bladder dysfunction [Unknown]
  - Temperature intolerance [Unknown]
  - Memory impairment [Unknown]
  - Hypoaesthesia [Unknown]
  - Olfactory dysfunction [Unknown]
  - Pain [Unknown]
  - Sleep disorder [Unknown]
  - Balance disorder [Not Recovered/Not Resolved]
  - Fatigue [Not Recovered/Not Resolved]
  - Paraesthesia [Not Recovered/Not Resolved]
  - Facial discomfort [Unknown]
  - Headache [Unknown]
